FAERS Safety Report 20175336 (Version 1)
Quarter: 2021Q4

REPORT INFORMATION
  Report Type: Spontaneous
  Country: US (occurrence: None)
  Receive Date: 20211209
  Receipt Date: 20211209
  Transmission Date: 20220303
  Serious: Yes (Death)
  Sender: FDA-Public Use
  Company Number: None

PATIENT
  Age: 67 Year
  Sex: Male
  Weight: 65.7 kg

DRUGS (1)
  1. KYPROLIS [Suspect]
     Active Substance: CARFILZOMIB
     Indication: Plasma cell myeloma
     Dosage: OTHER FREQUENCY : DAYS 1,2,8,9,15,16;?
     Route: 042
     Dates: start: 20211013, end: 20211124

REACTIONS (1)
  - Death [None]

NARRATIVE: CASE EVENT DATE: 20211124
